FAERS Safety Report 17984196 (Version 9)
Quarter: 2022Q3

REPORT INFORMATION
  Report Type: Spontaneous
  Country: GB (occurrence: GB)
  Receive Date: 20200706
  Receipt Date: 20220920
  Transmission Date: 20221027
  Serious: Yes (Death, Other)
  Sender: FDA-Public Use
  Company Number: GB-EMA-DD-20200619-GANGAL_S-145656

PATIENT
  Age: 66 Year
  Sex: Female

DRUGS (30)
  1. ANAKINRA [Suspect]
     Active Substance: ANAKINRA
     Indication: Immune effector cell-associated neurotoxicity syndrome
     Dosage: UNK
     Dates: start: 20200124
  2. ANAKINRA [Suspect]
     Active Substance: ANAKINRA
     Indication: Immune effector cell-associated neurotoxicity syndrome
     Dates: start: 20200121
  3. ANAKINRA [Suspect]
     Active Substance: ANAKINRA
     Indication: Immune effector cell-associated neurotoxicity syndrome
     Dosage: 4 TIMES
     Dates: start: 20200113, end: 20200120
  4. ANAKINRA [Suspect]
     Active Substance: ANAKINRA
     Indication: Myasthenic syndrome
  5. ANAKINRA [Suspect]
     Active Substance: ANAKINRA
     Indication: Lymphocyte adoptive therapy
  6. TOCILIZUMAB [Suspect]
     Active Substance: TOCILIZUMAB
     Indication: Cytokine release syndrome
     Dosage: UNK UNK, QID ,4 TIMES
     Dates: start: 20200113, end: 20200120
  7. TOCILIZUMAB [Suspect]
     Active Substance: TOCILIZUMAB
     Indication: Immune effector cell-associated neurotoxicity syndrome
  8. TOCILIZUMAB [Suspect]
     Active Substance: TOCILIZUMAB
     Indication: Immune effector cell-associated neurotoxicity syndrome
  9. TOCILIZUMAB [Suspect]
     Active Substance: TOCILIZUMAB
     Indication: Immune effector cell-associated neurotoxicity syndrome
  10. SYLVANT [Suspect]
     Active Substance: SILTUXIMAB
     Indication: Cytokine release syndrome
     Dates: start: 20191230
  11. SYLVANT [Suspect]
     Active Substance: SILTUXIMAB
     Dosage: 100 MILLIGRAM
     Dates: start: 20200210
  12. DEXAMETHASONE [Suspect]
     Active Substance: DEXAMETHASONE
     Indication: Immune effector cell-associated neurotoxicity syndrome
     Dosage: UNK
     Dates: start: 20200121
  13. METHYLPREDNISOLONE [Suspect]
     Active Substance: METHYLPREDNISOLONE
     Indication: Immune effector cell-associated neurotoxicity syndrome
     Dosage: UNK
  14. PREDNISOLONE [Concomitant]
     Active Substance: PREDNISOLONE
     Indication: Myasthenic syndrome
     Dosage: 100 MG, ()
     Dates: start: 20200210
  15. FLUCONAZOLE [Concomitant]
     Active Substance: FLUCONAZOLE
     Indication: Lymphocyte adoptive therapy
     Dosage: UNK
     Dates: start: 20200106
  16. AZATHIOPRINE [Concomitant]
     Active Substance: AZATHIOPRINE
     Indication: Myasthenic syndrome
     Dosage: UNK
  17. CIPROFLOXACIN [Concomitant]
     Active Substance: CIPROFLOXACIN
     Indication: Lymphocyte adoptive therapy
     Dosage: UNKNOWN
     Dates: start: 20200103
  18. FILGRASTIM [Concomitant]
     Active Substance: FILGRASTIM
     Indication: Lymphocyte adoptive therapy
     Dosage: UNK
     Dates: start: 20200130
  19. METOCLOPRAMIDE [Concomitant]
     Active Substance: METOCLOPRAMIDE
     Indication: Lymphocyte adoptive therapy
     Dosage: UNK
     Dates: start: 20200103
  20. LEVETIRACETAM [Concomitant]
     Active Substance: LEVETIRACETAM
     Indication: Lymphocyte adoptive therapy
     Dosage: UNK
     Dates: start: 20200108
  21. ACYCLOVIR [Concomitant]
     Active Substance: ACYCLOVIR
     Indication: Lymphocyte adoptive therapy
     Dosage: UNK
     Dates: start: 20200103
  22. ONDANSETRON [Concomitant]
     Active Substance: ONDANSETRON
     Indication: Lymphocyte adoptive therapy
     Dosage: UNK
     Dates: start: 20200103
  23. FILGRASTIM [Concomitant]
     Active Substance: FILGRASTIM
     Indication: Lymphocyte adoptive therapy
     Dosage: UNKNOWN
     Dates: start: 20200130
  24. PREDNISOLONE [Concomitant]
     Active Substance: PREDNISOLONE
     Indication: Myasthenic syndrome
  25. METHYLPREDNISOLONE [Suspect]
     Active Substance: METHYLPREDNISOLONE
     Indication: Lymphocyte adoptive therapy
  26. METHYLPREDNISOLONE [Suspect]
     Active Substance: METHYLPREDNISOLONE
     Indication: Immune effector cell-associated neurotoxicity syndrome
  27. FILGRASTIM [Concomitant]
     Active Substance: FILGRASTIM
     Indication: Lymphocyte adoptive therapy
  28. DEXAMETHASONE [Suspect]
     Active Substance: DEXAMETHASONE
     Indication: Immune effector cell-associated neurotoxicity syndrome
  29. DEXAMETHASONE [Suspect]
     Active Substance: DEXAMETHASONE
     Indication: Immune effector cell-associated neurotoxicity syndrome
  30. METHYLPREDNISOLONE [Suspect]
     Active Substance: METHYLPREDNISOLONE
     Indication: Immune effector cell-associated neurotoxicity syndrome

REACTIONS (10)
  - Toxicity to various agents [Fatal]
  - Toxicity to various agents [Fatal]
  - Disease progression [Fatal]
  - Diffuse large B-cell lymphoma [Fatal]
  - Neoplasm progression [Fatal]
  - Product use in unapproved indication [Fatal]
  - Cytokine release syndrome [Unknown]
  - Immune effector cell-associated neurotoxicity syndrome [Unknown]
  - Condition aggravated [Unknown]
  - Off label use [Fatal]

NARRATIVE: CASE EVENT DATE: 20200301
